FAERS Safety Report 7894398-X (Version None)
Quarter: 2011Q4

REPORT INFORMATION
  Report Type: 
  Country: None (occurrence: None)
  Receive Date: 20111104
  Receipt Date: 20111026
  Transmission Date: 20120403
  Serious: Yes (Hospitalization)
  Sender: FDA-Public Use
  Company Number: FR-ASTRAZENECA-2011SE65009

PATIENT
  Sex: Female

DRUGS (6)
  1. CRESTOR [Suspect]
     Route: 048
  2. VENLAFAXINE [Suspect]
     Route: 048
  3. LEVOTHYROXINE SODIUM [Suspect]
     Route: 048
     Dates: end: 20110717
  4. ASPIRIN [Suspect]
     Route: 048
  5. NITROGLYCERIN [Suspect]
     Route: 062
  6. AMIODARONE HCL [Suspect]
     Route: 048

REACTIONS (1)
  - BURNS SECOND DEGREE [None]
